FAERS Safety Report 9884644 (Version 1)
Quarter: 2014Q1

REPORT INFORMATION
  Report Type: Spontaneous
  Country: US (occurrence: US)
  Receive Date: 20140210
  Receipt Date: 20140210
  Transmission Date: 20141002
  Serious: No
  Sender: FDA-Public Use
  Company Number: US-ALLERGAN-1317942US

PATIENT
  Sex: Female

DRUGS (2)
  1. BOTOX [Suspect]
     Indication: MIGRAINE
  2. BOTOX [Suspect]
     Indication: TEMPOROMANDIBULAR JOINT SYNDROME

REACTIONS (4)
  - Insomnia [Unknown]
  - Off label use [Unknown]
  - Neck pain [Unknown]
  - Muscular weakness [Unknown]
